FAERS Safety Report 20475056 (Version 1)
Quarter: 2022Q1

REPORT INFORMATION
  Report Type: Spontaneous
  Country: US (occurrence: US)
  Receive Date: 20220215
  Receipt Date: 20220215
  Transmission Date: 20220423
  Serious: No
  Sender: FDA-Public Use
  Company Number: US-PFIZER INC-202101594713

PATIENT
  Age: 57 Year
  Sex: Female

DRUGS (2)
  1. IBRANCE [Suspect]
     Active Substance: PALBOCICLIB
     Dosage: UNK
  2. FASLODEX [Concomitant]
     Active Substance: FULVESTRANT
     Dosage: UNK (COUPLE OF FASLODEX SHOTS)

REACTIONS (6)
  - Skin exfoliation [Unknown]
  - Skin discomfort [Unknown]
  - Nail pitting [Unknown]
  - Dry skin [Unknown]
  - Rash [Unknown]
  - Alopecia [Unknown]
